FAERS Safety Report 10768332 (Version 1)
Quarter: 2015Q1

REPORT INFORMATION
  Report Type: Spontaneous
  Country: GB (occurrence: GB)
  Receive Date: 20150206
  Receipt Date: 20150206
  Transmission Date: 20150721
  Serious: Yes (Other)
  Sender: FDA-Public Use
  Company Number: GB-ACCORD-028373

PATIENT
  Age: 21 Year
  Sex: Male

DRUGS (2)
  1. SERTRALINE [Suspect]
     Active Substance: SERTRALINE HYDROCHLORIDE
     Indication: DEPRESSION
     Dosage: PREVIOUSLY RECEIVED 50 MG.
     Route: 048
  2. MEBEVERINE [Concomitant]
     Active Substance: MEBEVERINE

REACTIONS (5)
  - Night sweats [Recovering/Resolving]
  - Chills [Recovered/Resolved]
  - Withdrawal syndrome [Recovered/Resolved]
  - Irritability [Not Recovered/Not Resolved]
  - Hot flush [Recovering/Resolving]

NARRATIVE: CASE EVENT DATE: 20150102
